FAERS Safety Report 4522447-5 (Version None)
Quarter: 2004Q4

REPORT INFORMATION
  Report Type: 
  Country: None (occurrence: None)
  Receive Date: 20041116
  Receipt Date: 20040818
  Transmission Date: 20050328
  Serious: No
  Sender: FDA-Public Use
  Company Number: S04-USA-05728-01

PATIENT
  Age: 56 Year
  Sex: Female

DRUGS (6)
  1. NAMENDA [Suspect]
     Indication: PAIN
     Dosage: 5 MG QD PO
     Route: 048
     Dates: start: 20040804, end: 20040810
  2. NAMENDA [Suspect]
     Indication: PAIN
     Dosage: 5 MG BID PO
     Route: 048
     Dates: start: 20040811
  3. ZOLOFT [Concomitant]
  4. AMBIEN [Concomitant]
  5. DURAGESIC [Concomitant]
  6. VICODIN [Concomitant]

REACTIONS (2)
  - ACNE [None]
  - CONSTIPATION [None]
